FAERS Safety Report 17426859 (Version 2)
Quarter: 2020Q1

REPORT INFORMATION
  Report Type: Spontaneous
  Country: US (occurrence: US)
  Receive Date: 20200217
  Receipt Date: 20200320
  Transmission Date: 20200409
  Serious: Yes (Other)
  Sender: FDA-Public Use
  Company Number: US-BAYER-2020-026643

PATIENT
  Age: 31 Year
  Sex: Female
  Weight: 73 kg

DRUGS (2)
  1. KYLEENA [Suspect]
     Active Substance: LEVONORGESTREL
     Indication: CONTRACEPTION
     Dosage: 17.5 ?G PER DAY, CONT
     Route: 015
     Dates: start: 20191230, end: 20200130
  2. VITAMIN D [VITAMIN D NOS] [Concomitant]
     Active Substance: VITAMIN D NOS

REACTIONS (4)
  - Device dislocation [Recovered/Resolved]
  - Genital haemorrhage [None]
  - Medical device discomfort [None]
  - Abdominal pain lower [None]

NARRATIVE: CASE EVENT DATE: 20200130
